FAERS Safety Report 11498428 (Version 3)
Quarter: 2015Q4

REPORT INFORMATION
  Report Type: Spontaneous
  Country: JP (occurrence: JP)
  Receive Date: 20150911
  Receipt Date: 20151002
  Transmission Date: 20160304
  Serious: Yes (Hospitalization)
  Sender: FDA-Public Use
  Company Number: JP-009507513-1509JPN006059

PATIENT
  Age: 55 Year
  Sex: Male
  Weight: 59.4 kg

DRUGS (9)
  1. CRESTOR [Concomitant]
     Active Substance: ROSUVASTATIN CALCIUM
     Indication: HYPERCHOLESTEROLAEMIA
     Dosage: 2.5 MG, QD
     Route: 048
     Dates: start: 20140430, end: 20141216
  2. PRERAN [Concomitant]
     Active Substance: TRANDOLAPRIL
     Indication: HYPERTENSION
     Dosage: 1 MG, QD. FORMULATION: POR
     Route: 048
     Dates: start: 20140521, end: 20141216
  3. AMARYL [Concomitant]
     Active Substance: GLIMEPIRIDE
     Indication: TYPE 2 DIABETES MELLITUS
     Dosage: 0.5 MG, QD. FORMULATION: POR
     Route: 048
     Dates: start: 20140827, end: 20141217
  4. AMARYL [Concomitant]
     Active Substance: GLIMEPIRIDE
     Dosage: 1 MG, BID
     Route: 048
     Dates: start: 20140702, end: 20140826
  5. OLMESARTAN MEDOXOMIL. [Concomitant]
     Active Substance: OLMESARTAN MEDOXOMIL
     Indication: HYPERTENSION
     Dosage: 20 MG, QD
     Route: 048
     Dates: start: 20140430, end: 20141216
  6. LASIX [Concomitant]
     Active Substance: FUROSEMIDE
     Dosage: 80 MG, BID
     Route: 048
     Dates: start: 20141119
  7. MIRCERA [Concomitant]
     Active Substance: METHOXY POLYETHYLENE GLYCOL-EPOETIN BETA
     Indication: NEPHROGENIC ANAEMIA
     Dosage: 150 MICROGRAM, QD
     Route: 051
     Dates: start: 20140827, end: 20140827
  8. JANUVIA [Suspect]
     Active Substance: SITAGLIPTIN PHOSPHATE
     Indication: TYPE 2 DIABETES MELLITUS
     Dosage: 25 MG, QD
     Route: 048
     Dates: start: 20140604, end: 20141217
  9. LASIX [Concomitant]
     Active Substance: FUROSEMIDE
     Dosage: 40 MG, QD. FORMULATION: POR
     Route: 048
     Dates: start: 2014, end: 20141021

REACTIONS (7)
  - Hyperbilirubinaemia [Not Recovered/Not Resolved]
  - Nausea [Recovered/Resolved]
  - Dizziness [Recovering/Resolving]
  - Hypoglycaemia [Recovered/Resolved]
  - Renal impairment [Not Recovered/Not Resolved]
  - Oedema due to renal disease [Not Recovered/Not Resolved]
  - Amylase increased [Unknown]

NARRATIVE: CASE EVENT DATE: 20140827
